FAERS Safety Report 4396407-1 (Version None)
Quarter: 2004Q3

REPORT INFORMATION
  Report Type: 
  Country: None (occurrence: None)
  Receive Date: 20040708
  Receipt Date: 20040622
  Transmission Date: 20050211
  Serious: Yes (Other)
  Sender: FDA-Public Use
  Company Number: 2004-DE-03444GD

PATIENT

DRUGS (5)
  1. DIPYRIDAMOLE [Suspect]
     Indication: NEPHRITIS
     Dosage: 5 MG/KG
  2. METHYLPREDNISOLONE [Suspect]
     Dosage: 1 PULSE 30 MG/KG, MAXIMUM 1 G
  3. UROKINASE (UROKINASE) [Suspect]
     Indication: NEPHRITIS
     Dosage: 5000 UNITS/KG, MAXIMUM 18000 UNITS
     Route: 042
  4. PREDNISOLONE [Suspect]
     Indication: NEPHRITIS
     Dosage: 1 MG/KG
     Route: 048
  5. WARFARIN (WARFARIN) [Suspect]
     Indication: NEPHRITIS
     Dosage: 1 MG FOR {7 YEAR-OLD PATIENTS, 2 MG FOR }7 YEAR-OLD PATIENTS
     Route: 048

REACTIONS (1)
  - NEPHROPATHY [None]
